FAERS Safety Report 6249540-3 (Version None)
Quarter: 2009Q2

REPORT INFORMATION
  Report Type: 
  Country: None (occurrence: None)
  Receive Date: 20090625
  Receipt Date: 20090625
  Transmission Date: 20091009
  Serious: No
  Sender: FDA-Public Use
  Company Number: None

PATIENT
  Age: 26 Year
  Sex: Female

DRUGS (1)
  1. ZICAM COLD REMEDY GEL SWABS MATRIXX INITIATIVES, INC. [Suspect]
     Indication: NASOPHARYNGITIS
     Dosage: 20 SWABS IN BOX 1 SWAB EVERY 4HOUR NASAL
     Route: 045
     Dates: start: 20090325, end: 20090401

REACTIONS (3)
  - ANGER [None]
  - ANOSMIA [None]
  - DEPRESSION [None]
